FAERS Safety Report 6248564-X (Version None)
Quarter: 2009Q2

REPORT INFORMATION
  Report Type: 
  Country: None (occurrence: None)
  Receive Date: 20090624
  Receipt Date: 20090615
  Transmission Date: 20091009
  Serious: Yes (Hospitalization, Other)
  Sender: FDA-Public Use
  Company Number: 2009AP000945

PATIENT
  Sex: Male

DRUGS (2)
  1. DILTZAC [Suspect]
     Indication: ATRIAL FIBRILLATION
     Dosage: SEE IMAGE
     Route: 048
     Dates: end: 20080901
  2. DILTZAC [Suspect]
     Indication: ATRIAL FIBRILLATION
     Dosage: SEE IMAGE
     Route: 048
     Dates: start: 20080901

REACTIONS (4)
  - DIARRHOEA [None]
  - HYPOAESTHESIA [None]
  - URINE OUTPUT DECREASED [None]
  - VOMITING [None]
